FAERS Safety Report 5068523-2 (Version None)
Quarter: 2006Q3

REPORT INFORMATION
  Report Type: 
  Country: None (occurrence: None)
  Receive Date: 20060802
  Receipt Date: 20051108
  Transmission Date: 20061208
  Serious: No
  Sender: FDA-Public Use
  Company Number: US-BRISTOL-MYERS SQUIBB COMPANY-13172283

PATIENT
  Age: 69 Year
  Sex: Male
  Weight: 66 kg

DRUGS (8)
  1. COUMADIN [Suspect]
     Indication: STENT PLACEMENT
  2. PLAVIX [Suspect]
     Indication: STENT PLACEMENT
     Dates: start: 20010101
  3. LIPITOR [Concomitant]
     Dates: start: 20010601
  4. ATENOLOL [Concomitant]
     Dosage: ATENOLOL 25MG, 1/2 TABLET SINCE 06/01.
     Dates: start: 20010601
  5. VITAMINS [Concomitant]
     Dates: start: 20010601
  6. FOLIC ACID [Concomitant]
     Dosage: ONE TABLET DAILY
     Dates: start: 20010601
  7. ASPIRIN [Concomitant]
     Dates: start: 20010601
  8. POTASSIUM [Concomitant]
     Dosage: EVERY OTHER DAY, ON AND OFF SINCE 02/05.
     Dates: start: 20050201

REACTIONS (1)
  - CONTUSION [None]
